FAERS Safety Report 16125623 (Version 1)
Quarter: 2019Q1

REPORT INFORMATION
  Report Type: Spontaneous
  Country: US (occurrence: US)
  Receive Date: 20190328
  Receipt Date: 20190328
  Transmission Date: 20190418
  Serious: No
  Sender: FDA-Public Use
  Company Number: US-ASTRAZENECA-2019SE36588

PATIENT
  Sex: Female

DRUGS (1)
  1. LYNPARZA [Suspect]
     Active Substance: OLAPARIB
     Indication: BREAST CANCER METASTATIC
     Dosage: UNKNOWN
     Route: 048

REACTIONS (5)
  - Asthenia [Unknown]
  - Dyspnoea [Unknown]
  - Cardiac failure congestive [Unknown]
  - Oedema [Unknown]
  - Fluid overload [Unknown]
